FAERS Safety Report 14495289 (Version 1)
Quarter: 2018Q1

REPORT INFORMATION
  Report Type: Spontaneous
  Country: US (occurrence: US)
  Receive Date: 20180206
  Receipt Date: 20180206
  Transmission Date: 20180509
  Serious: No
  Sender: FDA-Public Use
  Company Number: US-SMITH AND NEPHEW, INC-2016SMT01151

PATIENT
  Age: 68 Year
  Sex: Female
  Weight: 115.65 kg

DRUGS (13)
  1. ASPIRIN. [Concomitant]
     Active Substance: ASPIRIN
  2. HYDROCHLOROTHIAZIDE. [Concomitant]
     Active Substance: HYDROCHLOROTHIAZIDE
  3. LISINOPRIL. [Concomitant]
     Active Substance: LISINOPRIL
  4. MAGNESIUM [Concomitant]
     Active Substance: MAGNESIUM
  5. ACIPHEX [Concomitant]
     Active Substance: RABEPRAZOLE SODIUM
  6. DOXYCYCLINE. [Concomitant]
     Active Substance: DOXYCYCLINE
  7. METFORMIN [Concomitant]
     Active Substance: METFORMIN HYDROCHLORIDE
  8. IRON [Concomitant]
     Active Substance: IRON
  9. ZINC. [Concomitant]
     Active Substance: ZINC
  10. REGRANEX [Suspect]
     Active Substance: BECAPLERMIN
     Indication: WOUND
     Dosage: UNK, 1X/DAY
     Route: 061
     Dates: start: 20161130, end: 201612
  11. VITAMIN D [Concomitant]
     Active Substance: CHOLECALCIFEROL
  12. GLIPIZIDE. [Concomitant]
     Active Substance: GLIPIZIDE
  13. JANUVIA [Concomitant]
     Active Substance: SITAGLIPTIN PHOSPHATE

REACTIONS (1)
  - Drug effect incomplete [Not Recovered/Not Resolved]

NARRATIVE: CASE EVENT DATE: 20161130
